FAERS Safety Report 6847786-4 (Version None)
Quarter: 2010Q3

REPORT INFORMATION
  Report Type: 
  Country: None (occurrence: None)
  Receive Date: 20100716
  Receipt Date: 20100715
  Transmission Date: 20110219
  Serious: Yes (Hospitalization, Disabling)
  Sender: FDA-Public Use
  Company Number: US-ROXANE LABORATORIES, INC.-2010-RO-00857RO

PATIENT
  Sex: Female

DRUGS (6)
  1. LITHIUM CARBONATE [Suspect]
     Indication: BIPOLAR DISORDER
     Dosage: 300 MG
     Route: 048
     Dates: start: 20090701, end: 20100217
  2. LITHIUM CARBONATE [Suspect]
     Dosage: 450 MG
     Route: 048
     Dates: start: 20100217, end: 20100226
  3. BLOOD PRESSURE MEDICINE [Concomitant]
     Indication: BLOOD PRESSURE
  4. DIURETIC [Concomitant]
  5. DEPRESSION MEDICINE [Concomitant]
     Indication: DEPRESSION
  6. DEREX [Concomitant]

REACTIONS (10)
  - ABASIA [None]
  - APHASIA [None]
  - BLINDNESS [None]
  - BRAIN INJURY [None]
  - COMA [None]
  - DYSKINESIA [None]
  - DYSPHAGIA [None]
  - FOAMING AT MOUTH [None]
  - MUSCLE SPASTICITY [None]
  - NIGHTMARE [None]
